FAERS Safety Report 7644064-0 (Version None)
Quarter: 2011Q3

REPORT INFORMATION
  Report Type: 
  Country: None (occurrence: None)
  Receive Date: 20110729
  Receipt Date: 20110718
  Transmission Date: 20111222
  Serious: Yes (Other)
  Sender: FDA-Public Use
  Company Number: CA-JNJFOC-20110706471

PATIENT
  Sex: Male
  Weight: 88 kg

DRUGS (4)
  1. ALL OTHER THERAPEUTIC PRODUCTS [Concomitant]
  2. IBUPROFEN [Concomitant]
  3. HYPERTENSION MEDICATION [Concomitant]
  4. STELARA [Suspect]
     Indication: PSORIASIS
     Dosage: FREQUENCY 0, 4, 16, Q12 WEEKS
     Route: 058
     Dates: start: 20090507

REACTIONS (1)
  - RENAL CYST [None]
